FAERS Safety Report 14228884 (Version 1)
Quarter: 2017Q4

REPORT INFORMATION
  Report Type: Spontaneous
  Country: US (occurrence: None)
  Receive Date: 20171124
  Receipt Date: 20171124
  Transmission Date: 20180321
  Serious: No
  Sender: FDA-Public Use
  Company Number: None

PATIENT
  Age: 82 Year
  Sex: Female

DRUGS (1)
  1. STIVARGA [Suspect]
     Active Substance: REGORAFENIB
     Indication: SOFT TISSUE SARCOMA
     Dosage: 3 TABLETS DAILY BY MOUNTH
     Route: 048
     Dates: start: 20170118, end: 20171017

REACTIONS (2)
  - Blister [None]
  - Therapy cessation [None]

NARRATIVE: CASE EVENT DATE: 20171001
